FAERS Safety Report 20290829 (Version 1)
Quarter: 2022Q1

REPORT INFORMATION
  Report Type: Spontaneous
  Country: US (occurrence: None)
  Receive Date: 20220103
  Receipt Date: 20220103
  Transmission Date: 20220423
  Serious: No
  Sender: FDA-Public Use
  Company Number: None

PATIENT
  Age: 39 Year
  Sex: Female
  Weight: 71.1 kg

DRUGS (1)
  1. EMGALITY [Suspect]
     Active Substance: GALCANEZUMAB-GNLM
     Indication: Migraine prophylaxis
     Dosage: FREQUENCY : MONTHLY;?
     Route: 058
     Dates: start: 20210917, end: 20211217

REACTIONS (5)
  - Anxiety [None]
  - Panic attack [None]
  - Constipation [None]
  - Blood pressure increased [None]
  - Feeling jittery [None]

NARRATIVE: CASE EVENT DATE: 20211217
